FAERS Safety Report 10233031 (Version 1)
Quarter: 2014Q2

REPORT INFORMATION
  Report Type: Spontaneous
  Country: US (occurrence: US)
  Receive Date: 20140612
  Receipt Date: 20140612
  Transmission Date: 20141212
  Serious: No
  Sender: FDA-Public Use
  Company Number: US-PFIZER INC-2014158398

PATIENT
  Age: 83 Year
  Sex: Male
  Weight: 78.91 kg

DRUGS (2)
  1. LYRICA [Suspect]
     Indication: DIABETIC NEUROPATHY
     Dosage: 100 MG, UNK
     Dates: start: 2013
  2. LYRICA [Suspect]
     Dosage: 50 MG, UNK

REACTIONS (1)
  - Drug ineffective [Unknown]
